FAERS Safety Report 4520383-1 (Version None)
Quarter: 2004Q4

REPORT INFORMATION
  Report Type: 
  Country: None (occurrence: None)
  Receive Date: 20041206
  Receipt Date: 20041206
  Transmission Date: 20050328
  Serious: Yes (Hospitalization)
  Sender: FDA-Public Use
  Company Number: None

PATIENT
  Age: 41 Year
  Sex: Female
  Weight: 66 kg

DRUGS (2)
  1. PACLITAXEL [Suspect]
     Indication: BREAST CANCER
     Dosage: 91MG  24HR X 3 DAYS INTRAVENOUS
     Route: 042
     Dates: start: 20041122, end: 20041125
  2. CYTOXAN [Suspect]
     Indication: BREAST CANCER
     Dosage: 1190  30MIN X 3 DAYS  INTRAVENOUS
     Route: 042
     Dates: start: 20041122, end: 20041124

REACTIONS (1)
  - FEBRILE NEUTROPENIA [None]
